FAERS Safety Report 10483982 (Version 2)
Quarter: 2014Q3

REPORT INFORMATION
  Report Type: Spontaneous
  Country: FR (occurrence: FR)
  Receive Date: 20140930
  Receipt Date: 20140930
  Transmission Date: 20150326
  Serious: Yes (Life-Threatening, Hospitalization)
  Sender: FDA-Public Use
  Company Number: FR-PFIZER INC-2014268094

PATIENT
  Age: 60 Year
  Sex: Female

DRUGS (27)
  1. CORDARONE [Suspect]
     Active Substance: AMIODARONE HYDROCHLORIDE
     Dosage: 200 MG, DAILY
     Route: 048
     Dates: start: 20130730, end: 20140811
  2. PERFALGAN [Concomitant]
     Active Substance: ACETAMINOPHEN
     Dosage: UNK
     Dates: start: 20140801, end: 20140801
  3. CARBOPLATIN. [Concomitant]
     Active Substance: CARBOPLATIN
     Indication: LYMPHOMA
     Dosage: UNK
     Dates: start: 20140802, end: 20140802
  4. DOXORUBICIN [Concomitant]
     Active Substance: DOXORUBICIN
     Indication: LYMPHOMA
  5. OXALIPLATIN. [Concomitant]
     Active Substance: OXALIPLATIN
     Indication: LYMPHOMA
  6. INEXIUM [Concomitant]
     Active Substance: ESOMEPRAZOLE
  7. CYCLOPHOSPHAMIDE. [Concomitant]
     Active Substance: CYCLOPHOSPHAMIDE
     Indication: LYMPHOMA
  8. METHOTREXATE [Concomitant]
     Active Substance: METHOTREXATE
     Indication: LYMPHOMA
  9. DEXAMETHASONE. [Concomitant]
     Active Substance: DEXAMETHASONE
     Indication: LYMPHOMA
  10. POLARAMINE [Concomitant]
     Active Substance: DEXCHLORPHENIRAMINE MALEATE
     Dosage: UNK
     Dates: start: 20140801, end: 20140801
  11. MESNA. [Concomitant]
     Active Substance: MESNA
  12. INNOHEP [Concomitant]
     Active Substance: TINZAPARIN SODIUM
  13. CARMUSTINE [Concomitant]
     Active Substance: CARMUSTINE
     Indication: LYMPHOMA
  14. MELPHALAN [Concomitant]
     Active Substance: MELPHALAN
     Indication: LYMPHOMA
  15. RIVOTRIL [Concomitant]
     Active Substance: CLONAZEPAM
     Indication: CONVULSION
     Dosage: UNK
     Dates: start: 20140803
  16. METHYLPREDNISOLONE [Concomitant]
     Active Substance: METHYLPREDNISOLONE
     Dosage: UNK
     Dates: start: 20140801, end: 20140801
  17. HOLOXAN [Interacting]
     Active Substance: IFOSFAMIDE
     Indication: LYMPHOMA
     Dosage: UNK
     Route: 042
     Dates: start: 20140802, end: 20140802
  18. ETOPOPHOS [Concomitant]
     Active Substance: ETOPOSIDE PHOSPHATE
     Indication: LYMPHOMA
     Dosage: UNK
     Dates: start: 20140801, end: 20140802
  19. ZELITREX [Concomitant]
     Active Substance: VALACYCLOVIR HYDROCHLORIDE
  20. BACTRIM [Concomitant]
     Active Substance: SULFAMETHOXAZOLE\TRIMETHOPRIM
  21. VINCRISTINE [Concomitant]
     Active Substance: VINCRISTINE
     Indication: LYMPHOMA
  22. PREDNISONE. [Concomitant]
     Active Substance: PREDNISONE
     Indication: LYMPHOMA
  23. CYTARABINE. [Concomitant]
     Active Substance: CYTARABINE
     Indication: LYMPHOMA
  24. EMEND [Interacting]
     Active Substance: APREPITANT
     Dosage: 80 MG, DAILY
     Route: 048
     Dates: start: 20140801, end: 20140803
  25. PLITICAN [Concomitant]
     Active Substance: ALIZAPRIDE HYDROCHLORIDE
     Dosage: UNK
     Dates: start: 20140731, end: 20140801
  26. MABTHERA [Concomitant]
     Active Substance: RITUXIMAB
     Indication: LYMPHOMA
     Dosage: UNK
     Dates: start: 20140801, end: 20140801
  27. ZOPHREN [Concomitant]
     Active Substance: ONDANSETRON
     Dosage: UNK
     Dates: start: 20140731, end: 20140731

REACTIONS (3)
  - Encephalopathy [Recovered/Resolved]
  - Drug interaction [Recovered/Resolved]
  - Convulsion [Recovered/Resolved]

NARRATIVE: CASE EVENT DATE: 20140803
